FAERS Safety Report 4357436-7 (Version None)
Quarter: 2004Q2

REPORT INFORMATION
  Report Type: 
  Country: None (occurrence: None)
  Receive Date: 20040506
  Receipt Date: 20040424
  Transmission Date: 20050107
  Serious: Yes (Other)
  Sender: FDA-Public Use
  Company Number: 2004026336

PATIENT
  Age: 46 Year
  Sex: Male

DRUGS (3)
  1. NARDIL [Suspect]
     Indication: DEPRESSION
     Dosage: ORAL
     Route: 048
     Dates: start: 19860101
  2. NARDIL [Suspect]
     Indication: SOCIAL PHOBIA
     Dosage: ORAL
     Route: 048
     Dates: start: 19860101
  3. DIAZEPAM [Concomitant]

REACTIONS (6)
  - DEPRESSION [None]
  - DRUG DEPENDENCE [None]
  - DRUG EFFECT DECREASED [None]
  - DRUG INEFFECTIVE [None]
  - DRUG WITHDRAWAL SYNDROME [None]
  - MUSCLE SPASMS [None]
